FAERS Safety Report 7611495-4 (Version None)
Quarter: 2011Q3

REPORT INFORMATION
  Report Type: 
  Country: None (occurrence: None)
  Receive Date: 20110706
  Receipt Date: 20110613
  Transmission Date: 20111222
  Serious: Yes (Hospitalization, Other)
  Sender: FDA-Public Use
  Company Number: 2011028925

PATIENT
  Sex: Male

DRUGS (19)
  1. CALCIUM +D (CALCIUM D) [Concomitant]
  2. TOBRAMYCIN [Concomitant]
  3. BACTRIM [Concomitant]
  4. ZINC (ZINC) [Concomitant]
  5. DIFLUCAN [Concomitant]
  6. MEPHYTON (PHYTOMENADIONE) [Concomitant]
  7. ENTOCORT EC [Concomitant]
  8. B12 (CYANOCBALAMIN-TANIN COMPLEX) [Concomitant]
  9. SINGULAIR [Concomitant]
  10. HIZENTRA [Suspect]
     Indication: BRUTON'S AGAMMAGLOBULINAEMIA
     Dosage: 20 G 1X/WEEK, INFUSED 100ML SUBCUTANEOUS
     Route: 058
  11. PROBIOTIC COMPLEX (LACTOBACILLUS REUTERI) [Concomitant]
  12. PREVACID [Concomitant]
  13. ERGOCALCIFEROL [Concomitant]
  14. XIFAXAN (RIFAXIMIN) [Concomitant]
  15. CALCIUM CITRATE (CALCIUM CITRATE) [Concomitant]
  16. FLAGYL [Concomitant]
  17. LEVOFLOXACIN [Concomitant]
  18. ALBUTEROL [Concomitant]
  19. IGF-1 (SOMATROPIN) [Concomitant]

REACTIONS (15)
  - OEDEMA [None]
  - PROTEIN TOTAL DECREASED [None]
  - NEUTROPHIL PERCENTAGE INCREASED [None]
  - DIARRHOEA [None]
  - BLOOD CHLORIDE DECREASED [None]
  - ASPARTATE AMINOTRANSFERASE INCREASED [None]
  - ALANINE AMINOTRANSFERASE INCREASED [None]
  - GENERALISED OEDEMA [None]
  - WEIGHT DECREASED [None]
  - BLOOD CALCIUM DECREASED [None]
  - LYMPHOCYTE PERCENTAGE DECREASED [None]
  - FACE OEDEMA [None]
  - BLOOD ALBUMIN DECREASED [None]
  - OEDEMA PERIPHERAL [None]
  - BLOOD ALKALINE PHOSPHATASE INCREASED [None]
